FAERS Safety Report 5105750-X (Version None)
Quarter: 2006Q3

REPORT INFORMATION
  Report Type: 
  Country: None (occurrence: None)
  Receive Date: 20060915
  Receipt Date: 20060621
  Transmission Date: 20061208
  Serious: Yes (Death)
  Sender: FDA-Public Use
  Company Number: US-BRISTOL-MYERS SQUIBB COMPANY-13419643

PATIENT
  Age: 65 Year
  Sex: Male

DRUGS (4)
  1. COUMADIN [Suspect]
     Indication: CARDIAC VALVE DISEASE
     Dosage: DOSE:  1 OR TWO TABLETS DAILY
     Route: 048
     Dates: start: 19970101
  2. LIPITOR [Concomitant]
  3. NEURONTIN [Concomitant]
  4. HYZAAR [Concomitant]
     Dosage: DOSE:  50MG-12.5MG

REACTIONS (2)
  - CORONARY ARTERY DISEASE [None]
  - DEATH [None]
